FAERS Safety Report 8849999 (Version 1)
Quarter: 2012Q4

REPORT INFORMATION
  Report Type: 
  Country: US (occurrence: US)
  Receive Date: 20121019
  Receipt Date: 20121019
  Transmission Date: 20130627
  Serious: Yes (Other)
  Sender: FDA-Public Use
  Company Number: US-ELI_LILLY_AND_COMPANY-US201210003503

PATIENT

DRUGS (1)
  1. BYETTA [Suspect]
     Dosage: UNK, unknown
     Route: 058

REACTIONS (1)
  - Visual acuity reduced [Unknown]
